FAERS Safety Report 9198510 (Version 2)
Quarter: 2013Q2

REPORT INFORMATION
  Report Type: Spontaneous
  Country: GB (occurrence: GB)
  Receive Date: 20130329
  Receipt Date: 20130416
  Transmission Date: 20140414
  Serious: Yes (Hospitalization)
  Sender: FDA-Public Use
  Company Number: PHFR2013GB001930

PATIENT
  Age: 22 Year
  Sex: Male

DRUGS (4)
  1. CLOZARIL [Suspect]
     Indication: SCHIZOPHRENIA
     Dosage: 300 MG, QD
     Route: 048
     Dates: start: 20130124, end: 20130207
  2. QUETIAPINE [Concomitant]
     Dosage: 700 MG, QD
     Route: 048
  3. LITHIUM CARBONATE [Concomitant]
     Dosage: 800 MG, QD
     Route: 048
  4. SERTRALINE [Concomitant]
     Dosage: 50 MG, QD
     Route: 048

REACTIONS (5)
  - Viral pericarditis [Recovered/Resolved]
  - Electrocardiogram change [Unknown]
  - Chest pain [Unknown]
  - Tachycardia [Unknown]
  - Pericardial effusion [Unknown]
